FAERS Safety Report 17193291 (Version 6)
Quarter: 2020Q2

REPORT INFORMATION
  Report Type: Report from Study
  Country: None (occurrence: US)
  Receive Date: 20191223
  Receipt Date: 20200407
  Transmission Date: 20200713
  Serious: Yes (Hospitalization, Other)
  Sender: FDA-Public Use
  Company Number: US-ABBVIE-19K-163-3159102-00

PATIENT
  Age: 89 Year
  Sex: Female
  Weight: 59.93 kg

DRUGS (7)
  1. IMBRUVICA [Suspect]
     Active Substance: IBRUTINIB
     Indication: CHRONIC LYMPHOCYTIC LEUKAEMIA
     Dosage: 420 MG, QD
     Route: 048
     Dates: start: 20190821
  2. IMBRUVICA [Suspect]
     Active Substance: IBRUTINIB
     Route: 048
  3. IMBRUVICA [Suspect]
     Active Substance: IBRUTINIB
     Route: 048
  4. IMBRUVICA [Suspect]
     Active Substance: IBRUTINIB
     Route: 048
  5. IMBRUVICA [Suspect]
     Active Substance: IBRUTINIB
     Route: 048
     Dates: start: 20190730
  6. IMBRUVICA [Suspect]
     Active Substance: IBRUTINIB
     Route: 048
  7. IMBRUVICA [Suspect]
     Active Substance: IBRUTINIB
     Dosage: 420 MG, QD
     Route: 048
     Dates: start: 20190822

REACTIONS (24)
  - Epistaxis [Unknown]
  - Rhinorrhoea [Unknown]
  - Musculoskeletal stiffness [Unknown]
  - Asthenia [Not Recovered/Not Resolved]
  - Dysuria [Unknown]
  - Neuropathy peripheral [Unknown]
  - Limb injury [Unknown]
  - Blood pressure increased [Unknown]
  - Malignant melanoma [Unknown]
  - Atrial fibrillation [Unknown]
  - White blood cell count increased [Not Recovered/Not Resolved]
  - Purpura [Unknown]
  - Nasopharyngitis [Unknown]
  - Blood potassium decreased [Recovered/Resolved]
  - Dyspnoea [Not Recovered/Not Resolved]
  - Urinary tract infection [Unknown]
  - Vomiting [Unknown]
  - Blood sodium decreased [Unknown]
  - Fatigue [Unknown]
  - Viral infection [Unknown]
  - Seborrhoeic keratosis [Unknown]
  - Oedema peripheral [Unknown]
  - Headache [Recovered/Resolved]
  - Skin mass [Unknown]

NARRATIVE: CASE EVENT DATE: 2019
